FAERS Safety Report 5052396-8 (Version None)
Quarter: 2006Q3

REPORT INFORMATION
  Report Type: 
  Country: None (occurrence: None)
  Receive Date: 20060710
  Receipt Date: 20040618
  Transmission Date: 20061208
  Serious: Yes (Other)
  Sender: FDA-Public Use
  Company Number: WW FILE # 2181

PATIENT
  Age: 15 Year
  Sex: Male

DRUGS (3)
  1. CHLOROQUINE PHOSPHATE [Suspect]
     Dosage: 500MG PER DAY ORAL
     Route: 048
  2. ADORAL 10MG [Suspect]
     Dosage: 10MG 1 X DAY ORAL
     Route: 048
  3. ADORAL [Concomitant]

REACTIONS (3)
  - CONFUSIONAL STATE [None]
  - DELIRIUM [None]
  - PSYCHOTIC DISORDER [None]
